FAERS Safety Report 14239252 (Version 1)
Quarter: 2017Q4

REPORT INFORMATION
  Report Type: Spontaneous
  Country: US (occurrence: US)
  Receive Date: 20171127
  Receipt Date: 20171127
  Transmission Date: 20180321
  Serious: Yes (Hospitalization, Disabling, Other)
  Sender: FDA-Public Use
  Company Number: None

PATIENT
  Age: 28 Year
  Sex: Female
  Weight: 51.75 kg

DRUGS (4)
  1. GABAPENTIN. [Concomitant]
     Active Substance: GABAPENTIN
  2. CLOBETASOL PROPIONATE. [Suspect]
     Active Substance: CLOBETASOL PROPIONATE
     Indication: ECZEMA
     Route: 061
  3. DUPIXENT [Concomitant]
     Active Substance: DUPILUMAB
  4. HYDROXYZINE [Concomitant]
     Active Substance: HYDROXYZINE HYDROCHLORIDE

REACTIONS (7)
  - Rash erythematous [None]
  - Cold sweat [None]
  - Steroid withdrawal syndrome [None]
  - Alopecia [None]
  - Pruritus [None]
  - Mood swings [None]
  - Skin burning sensation [None]

NARRATIVE: CASE EVENT DATE: 20160101
